FAERS Safety Report 5447354-5 (Version None)
Quarter: 2007Q3

REPORT INFORMATION
  Report Type: 
  Country: None (occurrence: None)
  Receive Date: 20070905
  Receipt Date: 20070905
  Transmission Date: 20080115
  Serious: Yes (Other)
  Sender: FDA-Public Use
  Company Number: None

PATIENT
  Age: 71 Year
  Sex: Female
  Weight: 108.8633 kg

DRUGS (2)
  1. AVANDIA [Suspect]
     Indication: DIABETES MELLITUS
     Dosage: 10 MG QD PO
     Route: 048
     Dates: start: 20060701
  2. METFORMIN HCL [Suspect]
     Dosage: 500 MG 2/BID PO
     Route: 048
     Dates: start: 20070301, end: 20070601

REACTIONS (2)
  - OEDEMA [None]
  - OEDEMA PERIPHERAL [None]
